FAERS Safety Report 12638873 (Version 1)
Quarter: 2016Q3

REPORT INFORMATION
  Report Type: Spontaneous
  Country: US (occurrence: US)
  Receive Date: 20160809
  Receipt Date: 20160809
  Transmission Date: 20161109
  Serious: No
  Sender: FDA-Public Use
  Company Number: US-ASTRAZENECA-2016SE79530

PATIENT
  Age: 24579 Day
  Sex: Male
  Weight: 111.1 kg

DRUGS (3)
  1. BRILINTA [Suspect]
     Active Substance: TICAGRELOR
     Indication: STENT PLACEMENT
     Route: 048
     Dates: start: 20160621, end: 20160713
  2. PLAVIX [Concomitant]
     Active Substance: CLOPIDOGREL BISULFATE
     Dates: start: 20160713
  3. ASPIRIN. [Concomitant]
     Active Substance: ASPIRIN

REACTIONS (4)
  - Dyspnoea [Not Recovered/Not Resolved]
  - Blood creatinine increased [Unknown]
  - Weight abnormal [Unknown]
  - Body height abnormal [Unknown]

NARRATIVE: CASE EVENT DATE: 20160624
